FAERS Safety Report 7299528-9 (Version None)
Quarter: 2010Q4

REPORT INFORMATION
  Report Type: 
  Country: None (occurrence: None)
  Receive Date: 20101223
  Receipt Date: 20091228
  Transmission Date: 20110411
  Serious: Yes (Hospitalization)
  Sender: FDA-Public Use
  Company Number: 219537USA

PATIENT
  Age: 31 Year
  Sex: Female

DRUGS (2)
  1. PARAGARD T 380A [Suspect]
     Indication: CONTRACEPTION
     Dosage: I.U.
     Dates: end: 20091215
  2. AMLODIPINE BESYLATE AND BENAZEPRIL HCL [Concomitant]

REACTIONS (2)
  - MENOMETRORRHAGIA [None]
  - PELVIC INFLAMMATORY DISEASE [None]
